FAERS Safety Report 23020908 (Version 1)
Quarter: 2023Q4

REPORT INFORMATION
  Report Type: Spontaneous
  Country: US (occurrence: None)
  Receive Date: 20231003
  Receipt Date: 20231003
  Transmission Date: 20240110
  Serious: No
  Sender: FDA-Public Use
  Company Number: None

PATIENT
  Sex: Female

DRUGS (5)
  1. ICATIBANT ACETATE [Suspect]
     Active Substance: ICATIBANT ACETATE
     Indication: Complement deficiency disease
     Dosage: FREQUENCY : AS NEEDED;?
     Route: 042
     Dates: start: 202110
  2. ICATIBANT ACETATE PFS [Concomitant]
  3. SODIUM CHLORIDE [Concomitant]
     Active Substance: SODIUM CHLORIDE
  4. HEPARIN L/F SYR [Concomitant]
  5. RUCONEST SDV [Concomitant]

REACTIONS (1)
  - Hereditary angioedema [None]
